FAERS Safety Report 10702083 (Version 3)
Quarter: 2016Q4

REPORT INFORMATION
  Report Type: Spontaneous
  Country: US (occurrence: US)
  Receive Date: 20150109
  Receipt Date: 20161128
  Transmission Date: 20170206
  Serious: No
  Sender: FDA-Public Use
  Company Number: US-CELGENEUS-USA-2014094034

PATIENT
  Age: 27 Year
  Sex: Male

DRUGS (3)
  1. OTEZLA [Suspect]
     Active Substance: APREMILAST
     Indication: PSORIATIC ARTHROPATHY
     Dosage: 30 MG
     Route: 048
     Dates: start: 20140618
  2. OTEZLA [Suspect]
     Active Substance: APREMILAST
     Indication: PSORIASIS
  3. KENALOG [Concomitant]
     Active Substance: TRIAMCINOLONE ACETONIDE
     Indication: PRODUCT USED FOR UNKNOWN INDICATION
     Dosage: UNKNOWN
     Route: 061
     Dates: start: 20131104

REACTIONS (5)
  - Nausea [Recovered/Resolved]
  - Psoriasis [Not Recovered/Not Resolved]
  - Dehydration [Recovered/Resolved]
  - Headache [Recovered/Resolved]
  - Drug dose omission [Unknown]

NARRATIVE: CASE EVENT DATE: 2014
